FAERS Safety Report 26007668 (Version 2)
Quarter: 2025Q4

REPORT INFORMATION
  Report Type: Spontaneous
  Country: EU (occurrence: EU)
  Receive Date: 20251106
  Receipt Date: 20251203
  Transmission Date: 20260118
  Serious: Yes (Other)
  Sender: NOVARTIS
  Company Number: EU-002147023-NVSC2025DE169074

PATIENT
  Sex: Female
  Weight: 67 kg

DRUGS (1)
  1. GILENYA [Suspect]
     Active Substance: FINGOLIMOD HYDROCHLORIDE
     Indication: Relapsing-remitting multiple sclerosis
     Dosage: 0.5 MG (TABLET)
     Route: 048
     Dates: start: 20130718, end: 20250829

REACTIONS (2)
  - Retinal neovascularisation [Not Recovered/Not Resolved]
  - Retinal scar [Not Recovered/Not Resolved]

NARRATIVE: CASE EVENT DATE: 20250731
